APPROVED DRUG PRODUCT: SINGULAIR
Active Ingredient: MONTELUKAST SODIUM
Strength: EQ 4MG BASE
Dosage Form/Route: TABLET, CHEWABLE;ORAL
Application: N020830 | Product #002 | TE Code: AB
Applicant: ORGANON LLC A SUB OF ORGANON AND CO
Approved: Mar 3, 2000 | RLD: Yes | RS: No | Type: RX